FAERS Safety Report 7312362-6 (Version None)
Quarter: 2011Q1

REPORT INFORMATION
  Report Type: 
  Country: None (occurrence: None)
  Receive Date: 20110224
  Receipt Date: 20110217
  Transmission Date: 20110831
  Serious: Yes (Other)
  Sender: FDA-Public Use
  Company Number: DE-TEVA-267892GER

PATIENT
  Age: 56 Year
  Sex: Male

DRUGS (3)
  1. AZILECT [Suspect]
     Indication: PARKINSON'S DISEASE
     Dates: start: 20100901
  2. AMANTADINE HCL [Concomitant]
     Indication: PARKINSON'S DISEASE
     Dates: start: 20050101
  3. PRAMIPEXOLE DIHYDROCHLORIDE [Concomitant]
     Indication: PARKINSON'S DISEASE
     Dates: start: 20040101

REACTIONS (2)
  - IRON DEFICIENCY ANAEMIA [None]
  - HELICOBACTER GASTRITIS [None]
